FAERS Safety Report 24769036 (Version 1)
Quarter: 2024Q4

REPORT INFORMATION
  Report Type: Other
  Country: FR (occurrence: FR)
  Receive Date: 20241224
  Receipt Date: 20241224
  Transmission Date: 20250115
  Serious: Yes (Hospitalization)
  Sender: ZYDUS PHARM
  Company Number: None

PATIENT

DRUGS (4)
  1. PAROXETINE [Suspect]
     Active Substance: PAROXETINE
     Indication: Depression
     Dosage: 20 MILLIGRAM, QD
     Route: 048
     Dates: start: 20240909, end: 20241028
  2. CLOBAZAM [Suspect]
     Active Substance: CLOBAZAM
     Indication: Muscle contractions involuntary
     Dosage: 15 MILLIGRAM, QD
     Route: 048
     Dates: start: 20241023, end: 20241028
  3. FUNGIZONE [Suspect]
     Active Substance: AMPHOTERICIN B
     Indication: Oral fungal infection
     Dosage: UNK
     Route: 002
     Dates: start: 20241025, end: 20241028
  4. CANDESARTAN CILEXETIL [Concomitant]
     Active Substance: CANDESARTAN CILEXETIL
     Indication: Hypertension
     Dosage: UNK
     Route: 048
     Dates: start: 20190111

REACTIONS (1)
  - Macroglossia [Recovered/Resolved]

NARRATIVE: CASE EVENT DATE: 20241025
